FAERS Safety Report 13502714 (Version 2)
Quarter: 2017Q2

REPORT INFORMATION
  Report Type: Spontaneous
  Country: JP (occurrence: JP)
  Receive Date: 20170502
  Receipt Date: 20170510
  Transmission Date: 20170830
  Serious: Yes (Hospitalization)
  Sender: FDA-Public Use
  Company Number: JP-CONCORDIA PHARMACEUTICALS INC.-GSH201702-000821

PATIENT
  Age: 29 Year
  Sex: Female
  Weight: 50.8 kg

DRUGS (7)
  1. PREDNISOLONE. [Concomitant]
     Active Substance: PREDNISOLONE
     Indication: HISTIOCYTOSIS HAEMATOPHAGIC
  2. NEXIUM [Concomitant]
     Active Substance: ESOMEPRAZOLE MAGNESIUM
     Dates: start: 20160106
  3. EDIROL [Concomitant]
     Active Substance: ELDECALCITOL
     Dates: start: 20160108
  4. PROGRAF [Suspect]
     Active Substance: TACROLIMUS\TACROLIMUS ANHYDROUS
     Indication: SYSTEMIC LUPUS ERYTHEMATOSUS
     Dosage: AT 2 MG DAILY AND AT 3 MG DAILY FROM 13/JAN/2016
     Route: 065
     Dates: start: 20160108, end: 20160126
  5. PREDNISOLONE. [Concomitant]
     Active Substance: PREDNISOLONE
     Indication: SYSTEMIC LUPUS ERYTHEMATOSUS
     Route: 048
     Dates: start: 20160108
  6. FOSAMAX [Concomitant]
     Active Substance: ALENDRONATE SODIUM
     Dates: start: 20160113
  7. PLAQUENIL [Suspect]
     Active Substance: HYDROXYCHLOROQUINE SULFATE
     Indication: SYSTEMIC LUPUS ERYTHEMATOSUS
     Dosage: 400 MG QD AND 200 MG QD, ALTERNATELY.
     Route: 048
     Dates: start: 20160119, end: 20160125

REACTIONS (5)
  - Visual impairment [Recovering/Resolving]
  - Stevens-Johnson syndrome [Recovering/Resolving]
  - Lip swelling [Recovering/Resolving]
  - Conjunctival hyperaemia [Recovering/Resolving]
  - Hypoaesthesia oral [Recovering/Resolving]

NARRATIVE: CASE EVENT DATE: 20160126
